FAERS Safety Report 11333208 (Version 1)
Quarter: 2015Q3

REPORT INFORMATION
  Report Type: Spontaneous
  Country: US (occurrence: US)
  Receive Date: 20150803
  Receipt Date: 20150803
  Transmission Date: 20151125
  Serious: No
  Sender: FDA-Public Use
  Company Number: US-ELI_LILLY_AND_COMPANY-US200706004440

PATIENT
  Sex: Male
  Weight: 74.83 kg

DRUGS (2)
  1. ANALGESICS [Concomitant]
     Active Substance: UNSPECIFIED INGREDIENT
     Dates: start: 200308
  2. ZYPREXA [Suspect]
     Active Substance: OLANZAPINE
     Dosage: 25 MG, 2/D
     Dates: start: 200302, end: 200312

REACTIONS (7)
  - Abdominal pain [Not Recovered/Not Resolved]
  - Prescribed overdose [Recovered/Resolved]
  - Decreased appetite [Unknown]
  - Functional gastrointestinal disorder [Not Recovered/Not Resolved]
  - Nausea [Unknown]
  - Weight increased [Recovering/Resolving]
  - Fatigue [Unknown]

NARRATIVE: CASE EVENT DATE: 2003
